FAERS Safety Report 6032177-9 (Version None)
Quarter: 2008Q4

REPORT INFORMATION
  Report Type: 
  Country: None (occurrence: None)
  Receive Date: 20081224
  Receipt Date: 20081215
  Transmission Date: 20090506
  Serious: Yes (Hospitalization)
  Sender: FDA-Public Use
  Company Number: AECAN200800232

PATIENT
  Age: 63 Year
  Sex: Female

DRUGS (3)
  1. IMMUNE GLOBULIN INTRAVENOUS (HUMAN) [Suspect]
     Indication: NON-HODGKIN'S LYMPHOMA
     Dosage: 40 GM; TOTAL; IV
     Route: 042
     Dates: start: 20080903, end: 20080904
  2. IMMUNE GLOBULIN INTRAVENOUS (HUMAN) [Suspect]
     Indication: NON-HODGKIN'S LYMPHOMA
     Dosage: 10 GM; TOTAL; IV
     Route: 042
     Dates: start: 20080903, end: 20080903
  3. BLOOD AND RELATED PRODUCTS [Concomitant]

REACTIONS (2)
  - FEBRILE NONHAEMOLYTIC TRANSFUSION REACTION [None]
  - HISTOPLASMOSIS DISSEMINATED [None]
